FAERS Safety Report 25529204 (Version 1)
Quarter: 2025Q3

REPORT INFORMATION
  Report Type: Spontaneous
  Country: US (occurrence: US)
  Receive Date: 20250708
  Receipt Date: 20250708
  Transmission Date: 20251021
  Serious: Yes (Other)
  Sender: MYLAN
  Company Number: US-MYLANLABS-2025M1056383

PATIENT
  Age: 50 Year
  Sex: Female

DRUGS (3)
  1. TRETINOIN [Suspect]
     Active Substance: TRETINOIN
     Indication: Acute promyelocytic leukaemia
  2. METHYLPREDNISOLONE [Suspect]
     Active Substance: METHYLPREDNISOLONE
     Indication: Drug toxicity prophylaxis
  3. ARSENIC TRIOXIDE [Suspect]
     Active Substance: ARSENIC TRIOXIDE
     Indication: Acute promyelocytic leukaemia

REACTIONS (3)
  - Differentiation syndrome [Recovered/Resolved]
  - Drug ineffective [Unknown]
  - Off label use [Unknown]
